FAERS Safety Report 18902076 (Version 2)
Quarter: 2021Q1

REPORT INFORMATION
  Report Type: Spontaneous
  Country: US (occurrence: US)
  Receive Date: 20210216
  Receipt Date: 20210217
  Transmission Date: 20210420
  Serious: Yes (Death, Hospitalization, Other)
  Sender: FDA-Public Use
  Company Number: US-ELI_LILLY_AND_COMPANY-US202102006684

PATIENT
  Age: 51 Year
  Sex: Female
  Weight: 107.94 kg

DRUGS (3)
  1. LETAIRIS [Suspect]
     Active Substance: AMBRISENTAN
     Indication: PULMONARY ARTERIAL HYPERTENSION
     Dosage: UNK, UNKNOWN
     Route: 065
  2. REMODULIN [Suspect]
     Active Substance: TREPROSTINIL
     Indication: PULMONARY ARTERIAL HYPERTENSION
     Dosage: 24 UG/KG/MIN, CONTINUOUS (5 MG/ML)
     Route: 058
     Dates: start: 20200221
  3. ADCIRCA [Suspect]
     Active Substance: TADALAFIL
     Indication: PULMONARY ARTERIAL HYPERTENSION
     Dosage: UNK, UNKNOWN
     Route: 065

REACTIONS (4)
  - Respiratory failure [Fatal]
  - Septic shock [Fatal]
  - Cor pulmonale [Unknown]
  - Renal failure [Unknown]

NARRATIVE: CASE EVENT DATE: 20210204
